FAERS Safety Report 25244433 (Version 1)
Quarter: 2025Q2

REPORT INFORMATION
  Report Type: Spontaneous
  Country: US (occurrence: US)
  Receive Date: 20250428
  Receipt Date: 20250428
  Transmission Date: 20250717
  Serious: Yes (Other)
  Sender: ALKEM
  Company Number: US-ALKEM LABORATORIES LIMITED-US-ALKEM-2024-23583

PATIENT
  Age: 6 Decade
  Sex: Male

DRUGS (5)
  1. LENALIDOMIDE [Suspect]
     Active Substance: LENALIDOMIDE
     Indication: Rosai-Dorfman syndrome
     Dosage: 15 MILLIGRAM, QD, 1WEEK OFF THERAPY, FROM MONDAY TO FRIDAY WEEKLY WAS INITIATED
     Route: 065
  2. SIROLIMUS [Suspect]
     Active Substance: SIROLIMUS
     Indication: Rosai-Dorfman syndrome
     Dosage: 4 MILLIGRAM, QD
     Route: 048
  3. SIROLIMUS [Suspect]
     Active Substance: SIROLIMUS
     Route: 048
  4. DEXAMETHASONE [Suspect]
     Active Substance: DEXAMETHASONE
     Indication: Rosai-Dorfman syndrome
     Route: 065
  5. RITUXIMAB [Suspect]
     Active Substance: RITUXIMAB
     Indication: Rosai-Dorfman syndrome
     Route: 065

REACTIONS (3)
  - Cytopenia [Recovering/Resolving]
  - Neutropenia [Recovering/Resolving]
  - Thrombocytopenia [Recovering/Resolving]
